FAERS Safety Report 24372565 (Version 2)
Quarter: 2024Q4

REPORT INFORMATION
  Report Type: Report from Study
  Country: US (occurrence: US)
  Receive Date: 20240927
  Receipt Date: 20241007
  Transmission Date: 20250115
  Serious: Yes (Hospitalization)
  Sender: AMGEN
  Company Number: US-AMGEN-USANI2024187674

PATIENT
  Age: 17 Year
  Sex: Male

DRUGS (5)
  1. TARLATAMAB [Suspect]
     Active Substance: TARLATAMAB
     Indication: Thyroid cancer
     Dosage: 1 MILLIGRAM
     Route: 042
     Dates: start: 20240910
  2. TARLATAMAB [Suspect]
     Active Substance: TARLATAMAB
     Dosage: 10 MILLIGRAM
     Route: 042
     Dates: start: 20240917
  3. LEVOTHYROXINE [Concomitant]
     Active Substance: LEVOTHYROXINE
     Dosage: 88 MICROGRAM DAILY
     Route: 048
     Dates: start: 2018
  4. ONDANSETRON [Concomitant]
     Active Substance: ONDANSETRON
     Dosage: 8 MILLIGRAM PRN
     Route: 048
     Dates: start: 2018
  5. BACTRIM [Concomitant]
     Active Substance: SULFAMETHOXAZOLE\TRIMETHOPRIM
     Dosage: 160 MILLIGRAM, M/W/F
     Route: 048
     Dates: start: 2022

REACTIONS (1)
  - Cytokine release syndrome [Not Recovered/Not Resolved]

NARRATIVE: CASE EVENT DATE: 20240918
